FAERS Safety Report 5698754-X (Version None)
Quarter: 2008Q2

REPORT INFORMATION
  Report Type: 
  Country: None (occurrence: None)
  Receive Date: 20080403
  Receipt Date: 20080321
  Transmission Date: 20081010
  Serious: Yes (Other)
  Sender: FDA-Public Use
  Company Number: 2008000664

PATIENT
  Age: 68 Year
  Sex: Female

DRUGS (1)
  1. TARCEVA [Suspect]
     Indication: METASTASIS
     Dosage: (150 MG, QD), ORAL
     Route: 048
     Dates: start: 20060601

REACTIONS (2)
  - GROWTH OF EYELASHES [None]
  - HAIR GROWTH ABNORMAL [None]
